FAERS Safety Report 5464945-6 (Version None)
Quarter: 2007Q3

REPORT INFORMATION
  Report Type: 
  Country: None (occurrence: None)
  Receive Date: 20070921
  Receipt Date: 20070911
  Transmission Date: 20080115
  Serious: Yes (Other)
  Sender: FDA-Public Use
  Company Number: US-PFIZER INC-2007077114

PATIENT
  Sex: Female
  Weight: 87.727 kg

DRUGS (7)
  1. CHANTIX [Suspect]
     Indication: EX-SMOKER
     Route: 048
     Dates: start: 20070101, end: 20070101
  2. DRUG, UNSPECIFIED [Concomitant]
  3. REQUIP [Concomitant]
  4. CYMBALTA [Concomitant]
  5. CRESTOR [Concomitant]
  6. NORVASC [Concomitant]
  7. KLONOPIN [Concomitant]

REACTIONS (2)
  - ABNORMAL DREAMS [None]
  - DELUSION [None]
